FAERS Safety Report 14358593 (Version 1)
Quarter: 2018Q1

REPORT INFORMATION
  Report Type: Spontaneous
  Country: US (occurrence: US)
  Receive Date: 20180105
  Receipt Date: 20180105
  Transmission Date: 20180509
  Serious: Yes (Other)
  Sender: FDA-Public Use
  Company Number: US-SA-2017SA217786

PATIENT
  Age: 54 Year
  Sex: Female

DRUGS (1)
  1. DUPIXENT [Suspect]
     Active Substance: DUPILUMAB
     Indication: DERMATITIS ATOPIC
     Route: 058
     Dates: start: 20170912, end: 20171031

REACTIONS (5)
  - Dermatitis atopic [Unknown]
  - Skin swelling [Unknown]
  - Pruritus [Unknown]
  - Urticaria [Unknown]
  - Skin ulcer [Unknown]

NARRATIVE: CASE EVENT DATE: 2017
